FAERS Safety Report 5828430-1 (Version None)
Quarter: 2008Q3

REPORT INFORMATION
  Report Type: 
  Country: None (occurrence: None)
  Receive Date: 20080731
  Receipt Date: 20080722
  Transmission Date: 20090109
  Serious: Yes (Other)
  Sender: FDA-Public Use
  Company Number: US-ROCHE-565043

PATIENT
  Sex: Female

DRUGS (2)
  1. PEGASYS [Suspect]
     Dosage: RECEIVED THREE INJECTIONS
     Route: 058
     Dates: start: 20080311, end: 20080404
  2. COPEGUS [Suspect]
     Route: 065
     Dates: start: 20080311, end: 20080404

REACTIONS (7)
  - DYSPNOEA [None]
  - HODGKIN'S DISEASE [None]
  - HYPERTENSION [None]
  - INSOMNIA [None]
  - MANIA [None]
  - RED BLOOD CELL COUNT DECREASED [None]
  - WHITE BLOOD CELL COUNT DECREASED [None]
